FAERS Safety Report 6509378-6 (Version None)
Quarter: 2009Q4

REPORT INFORMATION
  Report Type: 
  Country: None (occurrence: None)
  Receive Date: 20091218
  Receipt Date: 20091218
  Transmission Date: 20100525
  Serious: Yes (Life-Threatening, Hospitalization)
  Sender: FDA-Public Use
  Company Number: None

PATIENT
  Sex: Female
  Weight: 78.0187 kg

DRUGS (8)
  1. RYTHMOL [Suspect]
     Indication: ATRIAL FIBRILLATION
     Dosage: 225MG TID P.O.
     Route: 048
     Dates: start: 20090710, end: 20090825
  2. ACCUPRIL [Concomitant]
  3. ACTONEL [Concomitant]
  4. FISH OIL [Concomitant]
  5. BYSTOLIC [Concomitant]
  6. COUMADIN [Concomitant]
  7. CITRACAL+D [Concomitant]
  8. LORAZEPAM [Concomitant]

REACTIONS (6)
  - ANAEMIA [None]
  - BONE MARROW TOXICITY [None]
  - FATIGUE [None]
  - SEPSIS [None]
  - STOMATITIS [None]
  - VENTRICULAR TACHYCARDIA [None]
